FAERS Safety Report 7102856-0 (Version None)
Quarter: 2010Q4

REPORT INFORMATION
  Report Type: 
  Country: None (occurrence: None)
  Receive Date: 20101115
  Receipt Date: 20101103
  Transmission Date: 20110411
  Serious: Yes (Hospitalization)
  Sender: FDA-Public Use
  Company Number: DE-JNJFOC-20101101654

PATIENT
  Age: 65 Year
  Sex: Female

DRUGS (2)
  1. IMODIUM AKUT N [Suspect]
     Route: 048
  2. IMODIUM AKUT N [Suspect]
     Indication: ILL-DEFINED DISORDER
     Route: 048

REACTIONS (4)
  - ABDOMINAL PAIN [None]
  - DRY MOUTH [None]
  - SYNCOPE [None]
  - VERTIGO [None]
